FAERS Safety Report 9890785 (Version 1)
Quarter: 2014Q1

REPORT INFORMATION
  Report Type: Spontaneous
  Country: US (occurrence: US)
  Receive Date: 20140212
  Receipt Date: 20140212
  Transmission Date: 20141002
  Serious: No
  Sender: FDA-Public Use
  Company Number: US-PFIZER INC-2014037434

PATIENT
  Sex: Male

DRUGS (1)
  1. VIAGRA [Suspect]
     Dosage: 100 MG, UNK
     Route: 048

REACTIONS (6)
  - Muscle spasms [Unknown]
  - Musculoskeletal discomfort [Unknown]
  - Penile swelling [Unknown]
  - Pain [Unknown]
  - Movement disorder [Unknown]
  - Gait disturbance [Unknown]
